FAERS Safety Report 8980631 (Version 1)
Quarter: 2012Q4

REPORT INFORMATION
  Report Type: 
  Country: DE (occurrence: DE)
  Receive Date: 20121221
  Receipt Date: 20121221
  Transmission Date: 20130627
  Serious: Yes (Other)
  Sender: FDA-Public Use
  Company Number: DE-JNJFOC-20121207569

PATIENT
  Sex: Female

DRUGS (4)
  1. PALEXIA RETARD [Suspect]
     Indication: POST HERPETIC NEURALGIA
     Route: 048
  2. VALORON [Concomitant]
     Indication: PRODUCT USED FOR UNKNOWN INDICATION
     Route: 065
  3. GABAPENTIN [Concomitant]
     Indication: PRODUCT USED FOR UNKNOWN INDICATION
     Route: 048
  4. VOLTAREN [Concomitant]
     Indication: PRODUCT USED FOR UNKNOWN INDICATION
     Route: 065

REACTIONS (2)
  - Glomerular filtration rate [Not Recovered/Not Resolved]
  - Drug ineffective [Not Recovered/Not Resolved]
